FAERS Safety Report 5035460-9 (Version None)
Quarter: 2006Q2

REPORT INFORMATION
  Report Type: 
  Country: None (occurrence: None)
  Receive Date: 20060525
  Receipt Date: 20060202
  Transmission Date: 20061013
  Serious: No
  Sender: FDA-Public Use
  Company Number: S05-USA-04898-01

PATIENT
  Age: 52 Year
  Sex: Male

DRUGS (6)
  1. CAMPRAL [Suspect]
     Indication: ALCOHOLISM
     Dosage: 333 MG BID PO
     Route: 048
     Dates: start: 20051028, end: 20051109
  2. CAMPRAL [Suspect]
     Indication: ALCOHOLISM
     Dosage: 333 MG QD PO
     Route: 048
     Dates: start: 20051110, end: 20051206
  3. ATENOLOL [Concomitant]
  4. BUSPAR (BUSPIRONE HYDROCHOLORIDE) [Concomitant]
  5. ZOLOFT [Concomitant]
  6. TEGRETOL [Concomitant]

REACTIONS (2)
  - GLOMERULAR FILTRATION RATE INCREASED [None]
  - POLLAKIURIA [None]
